FAERS Safety Report 9280262 (Version 2)
Quarter: 2013Q2

REPORT INFORMATION
  Report Type: Spontaneous
  Country: US (occurrence: US)
  Receive Date: 20130509
  Receipt Date: 20130603
  Transmission Date: 20140414
  Serious: No
  Sender: FDA-Public Use
  Company Number: US-VERTEX PHARMACEUTICALS INC-2013-005737

PATIENT
  Age: 50 Year
  Sex: Male
  Weight: 84 kg

DRUGS (3)
  1. INCIVEK [Suspect]
     Indication: HEPATITIS C
     Dosage: 750 MG, TID
     Route: 048
     Dates: start: 20130429
  2. PEGASYS [Suspect]
     Indication: HEPATITIS C
     Dosage: 180 ?G, QW
     Route: 058
     Dates: start: 20130429
  3. RIBASPHERE [Suspect]
     Indication: HEPATITIS C
     Dosage: 1000 MG, QD
     Route: 048
     Dates: start: 20130429

REACTIONS (11)
  - Feeling hot [Recovered/Resolved]
  - Joint stiffness [Recovered/Resolved]
  - Joint lock [Recovered/Resolved]
  - Psoriasis [Not Recovered/Not Resolved]
  - Dyspnoea [Not Recovered/Not Resolved]
  - Vision blurred [Not Recovered/Not Resolved]
  - Tinea pedis [Not Recovered/Not Resolved]
  - Drug administration error [Recovered/Resolved]
  - Fatigue [Not Recovered/Not Resolved]
  - Haemorrhoidal haemorrhage [Recovered/Resolved]
  - Pruritus [Not Recovered/Not Resolved]
